FAERS Safety Report 5408822-5 (Version None)
Quarter: 2007Q3

REPORT INFORMATION
  Report Type: 
  Country: None (occurrence: None)
  Receive Date: 20070713
  Receipt Date: 20070323
  Transmission Date: 20080115
  Serious: Yes (Hospitalization)
  Sender: FDA-Public Use
  Company Number: US-JNJFOC-20060701064

PATIENT
  Age: 32 Year
  Sex: Female
  Weight: 84.8226 kg

DRUGS (2)
  1. ORTHO EVRA [Suspect]
     Indication: DRUG USE FOR UNKNOWN INDICATION
     Dates: start: 20030301, end: 20030628
  2. LEXAPRO [Concomitant]

REACTIONS (2)
  - DEEP VEIN THROMBOSIS [None]
  - SUNBURN [None]
